FAERS Safety Report 17779003 (Version 1)
Quarter: 2020Q2

REPORT INFORMATION
  Report Type: Report from Study
  Country: US (occurrence: US)
  Receive Date: 20200514
  Receipt Date: 20200514
  Transmission Date: 20200714
  Serious: No
  Sender: FDA-Public Use
  Company Number: NVSC2020US130113

PATIENT
  Sex: Male

DRUGS (1)
  1. ILARIS [Suspect]
     Active Substance: CANAKINUMAB
     Indication: AMYLOIDOSIS
     Dosage: 150 MG, QMO
     Route: 058

REACTIONS (3)
  - Erythema [Unknown]
  - Product dose omission [Unknown]
  - Pyrexia [Unknown]
